FAERS Safety Report 16613697 (Version 1)
Quarter: 2019Q3

REPORT INFORMATION
  Report Type: Spontaneous
  Country: US (occurrence: US)
  Receive Date: 20190722
  Receipt Date: 20190722
  Transmission Date: 20191004
  Serious: Yes (Other)
  Sender: FDA-Public Use
  Company Number: None

PATIENT
  Age: 45 Year
  Sex: Female
  Weight: 69.75 kg

DRUGS (7)
  1. SYNTHROID [Concomitant]
     Active Substance: LEVOTHYROXINE SODIUM
  2. MSM [Concomitant]
     Active Substance: DIMETHYL SULFONE
  3. GARLIC. [Concomitant]
     Active Substance: GARLIC
  4. MULTIVITAMIN [Concomitant]
     Active Substance: VITAMINS
  5. NEOMYCIN AND POLYMYXIN B SULFATES AND DEXAMETHASONE [Suspect]
     Active Substance: DEXAMETHASONE\NEOMYCIN SULFATE\POLYMYXIN B SULFATE
     Indication: CONJUNCTIVITIS VIRAL
     Dosage: ?          QUANTITY:1 DROP(S);?
     Route: 047
     Dates: start: 20190718, end: 20190722
  6. OMEGA-3 ACIDS [Concomitant]
     Active Substance: OMEGA-3 FATTY ACIDS
  7. MAGNESIUM [Concomitant]
     Active Substance: MAGNESIUM

REACTIONS (13)
  - Bruxism [None]
  - Gastrointestinal pain [None]
  - Heart rate increased [None]
  - Loss of personal independence in daily activities [None]
  - Unevaluable event [None]
  - Malaise [None]
  - Nasal dryness [None]
  - Discomfort [None]
  - Nasal crusting [None]
  - Thirst [None]
  - Logorrhoea [None]
  - Abdominal pain [None]
  - Epistaxis [None]

NARRATIVE: CASE EVENT DATE: 20190722
